FAERS Safety Report 4651204-4 (Version None)
Quarter: 2005Q2

REPORT INFORMATION
  Report Type: 
  Country: None (occurrence: None)
  Receive Date: 20050503
  Receipt Date: 20050425
  Transmission Date: 20051028
  Serious: Yes (Life-Threatening, Hospitalization)
  Sender: FDA-Public Use
  Company Number: PHFR2005GB01611

PATIENT
  Age: 70 Year
  Sex: Female

DRUGS (7)
  1. ZOMETA [Suspect]
     Indication: METASTASES TO BONE
     Dosage: 4MG SINGLE DOSE
     Route: 042
     Dates: start: 20050309, end: 20050309
  2. ANASTROZOLE [Concomitant]
  3. GAVISCON [Concomitant]
  4. LACTULOSE [Concomitant]
  5. CYCLIZINE [Concomitant]
  6. DICLOFENAC SODIUM [Concomitant]
  7. PRAVASTATIN [Concomitant]

REACTIONS (4)
  - CHEST PAIN [None]
  - HYPERHIDROSIS [None]
  - OEDEMA MOUTH [None]
  - SOMNOLENCE [None]
